FAERS Safety Report 7302365-X (Version None)
Quarter: 2011Q1

REPORT INFORMATION
  Report Type: 
  Country: None (occurrence: None)
  Receive Date: 20110218
  Receipt Date: 20110217
  Transmission Date: 20110831
  Serious: Yes (Hospitalization)
  Sender: FDA-Public Use
  Company Number: JP-EISAI INC-E2020-08599-SPO-JP

PATIENT
  Age: 75 Year
  Sex: Female

DRUGS (14)
  1. ARICEPT [Suspect]
     Indication: DEMENTIA ALZHEIMER'S TYPE
     Route: 048
  2. SELBEX [Concomitant]
     Route: 048
  3. LYRICA [Concomitant]
  4. PLETAL [Concomitant]
  5. ASPARA POTASSIUM [Concomitant]
  6. TAKEPRON [Concomitant]
  7. ALDACTONE [Concomitant]
  8. LOXONIN [Concomitant]
  9. TANATRIL [Concomitant]
  10. WARFARIN [Concomitant]
  11. VERAPAMIL HCL [Concomitant]
     Route: 048
  12. ASPIRIN [Concomitant]
  13. RHYTHMY [Concomitant]
  14. LASIX [Concomitant]

REACTIONS (1)
  - SICK SINUS SYNDROME [None]
